FAERS Safety Report 5249580-7 (Version None)
Quarter: 2007Q1

REPORT INFORMATION
  Report Type: 
  Country: None (occurrence: None)
  Receive Date: 20070228
  Receipt Date: 20060321
  Transmission Date: 20070707
  Serious: No
  Sender: FDA-Public Use
  Company Number: US-GLAXOSMITHKLINE-A0598400A

PATIENT
  Age: 62 Year
  Sex: Female

DRUGS (4)
  1. IMITREX [Suspect]
     Indication: MIGRAINE
     Dosage: 20MG AS REQUIRED
     Route: 045
     Dates: start: 20060321
  2. DARVOCET [Concomitant]
  3. CARISOPRODOL [Concomitant]
  4. THYROID TAB [Concomitant]

REACTIONS (1)
  - EPISTAXIS [None]
